FAERS Safety Report 8260858-5 (Version None)
Quarter: 2012Q2

REPORT INFORMATION
  Report Type: 
  Country: None (occurrence: None)
  Receive Date: 20120402
  Receipt Date: 20120319
  Transmission Date: 20120825
  Serious: Yes (Death, Hospitalization, Other)
  Sender: FDA-Public Use
  Company Number: 2009AL004283

PATIENT
  Age: 69 Year
  Sex: Female
  Weight: 81.6475 kg

DRUGS (28)
  1. LOVENOX [Concomitant]
  2. TOPROL-XL [Concomitant]
  3. MAXIPIME [Concomitant]
  4. PROCRIT [Concomitant]
  5. BENADRYL [Concomitant]
  6. DIGOXIN [Suspect]
     Indication: ARRHYTHMIA
     Dosage: PO
     Route: 048
     Dates: start: 20060117, end: 20060605
  7. MAG OXIDE [Concomitant]
  8. NOVADEX [Concomitant]
  9. LORTAB [Concomitant]
  10. TAMOXIFEN CITRATE [Concomitant]
  11. LEVAQUIN [Concomitant]
  12. CLEOCIN HYDROCHLORIDE [Concomitant]
  13. CHEMOTHERAPY [Concomitant]
  14. AMIODARONE HYDROCHLORIDE [Concomitant]
  15. ASPIRIN [Concomitant]
  16. DUONEB [Concomitant]
  17. LEXAPRO [Concomitant]
  18. FLAGYL [Concomitant]
  19. COUMADIN [Concomitant]
  20. SKELAXIN [Concomitant]
  21. ALTACE [Concomitant]
  22. DARVOCET [Concomitant]
  23. PAXIL [Concomitant]
  24. LASIX [Concomitant]
  25. TYLENOL (CAPLET) [Concomitant]
  26. DOXYCYCLINE [Concomitant]
  27. LASIX [Concomitant]
  28. POTASSIUM CHLORIDE [Concomitant]

REACTIONS (41)
  - HEPATIC FAILURE [None]
  - HEPATIC CIRRHOSIS [None]
  - VENOUS INSUFFICIENCY [None]
  - CAROTID ARTERY STENOSIS [None]
  - DRY SKIN [None]
  - AORTIC STENOSIS [None]
  - DIVERTICULUM [None]
  - TREATMENT NONCOMPLIANCE [None]
  - DEPRESSION [None]
  - CORONARY ARTERY DISEASE [None]
  - RENAL FAILURE [None]
  - AGITATION [None]
  - CARDIAC FAILURE CONGESTIVE [None]
  - AORTIC VALVE INCOMPETENCE [None]
  - LOWER RESPIRATORY TRACT INFECTION [None]
  - PANCYTOPENIA [None]
  - MACROCYTOSIS [None]
  - LIPOMA [None]
  - TOXICITY TO VARIOUS AGENTS [None]
  - PULMONARY HYPERTENSION [None]
  - ATRIAL FIBRILLATION [None]
  - DIALYSIS [None]
  - SLOW RESPONSE TO STIMULI [None]
  - ALCOHOLIC LIVER DISEASE [None]
  - CYST [None]
  - ANXIETY [None]
  - SOMNOLENCE [None]
  - COLONIC POLYP [None]
  - TRICUSPID VALVE INCOMPETENCE [None]
  - ECONOMIC PROBLEM [None]
  - NERVOUS SYSTEM DISORDER [None]
  - PLEURAL EFFUSION [None]
  - COLITIS [None]
  - FATIGUE [None]
  - CHILLS [None]
  - HYPOKALAEMIA [None]
  - HAEMORRHOIDS [None]
  - HYPOTENSION [None]
  - HYPERHIDROSIS [None]
  - MITRAL VALVE INCOMPETENCE [None]
  - SKIN EXFOLIATION [None]
